FAERS Safety Report 10639282 (Version 2)
Quarter: 2014Q4

REPORT INFORMATION
  Report Type: Spontaneous
  Country: JP (occurrence: JP)
  Receive Date: 20141208
  Receipt Date: 20141208
  Transmission Date: 20150529
  Serious: Yes (Hospitalization)
  Sender: FDA-Public Use
  Company Number: JP-009507513-1411JPN009914

PATIENT
  Age: 81 Year
  Sex: Male

DRUGS (2)
  1. NU-LOTAN [Suspect]
     Active Substance: LOSARTAN POTASSIUM
     Dosage: 25 MG, DIVIDED DOSE FREQUENCY UNKNOWN
     Route: 048
     Dates: start: 20100709, end: 20141109
  2. ANCARON [Concomitant]
     Active Substance: AMIODARONE HYDROCHLORIDE
     Dosage: DAILY DOSE UNKNOWN
     Route: 065

REACTIONS (2)
  - Interstitial lung disease [Recovered/Resolved]
  - Lymphocyte stimulation test positive [Unknown]
